FAERS Safety Report 9325632 (Version 2)
Quarter: 2013Q2

REPORT INFORMATION
  Report Type: Report from Study
  Country: IT (occurrence: IT)
  Receive Date: 20130604
  Receipt Date: 20130628
  Transmission Date: 20140414
  Serious: Yes (Hospitalization)
  Sender: FDA-Public Use
  Company Number: IT-JNJFOC-20130520564

PATIENT
  Age: 13 Year
  Sex: Male
  Weight: 25.4 kg

DRUGS (5)
  1. REMICADE [Suspect]
     Indication: INFLAMMATORY BOWEL DISEASE
     Route: 042
     Dates: start: 20110405
  2. REMICADE [Suspect]
     Indication: COLITIS ULCERATIVE
     Route: 042
     Dates: start: 20110405
  3. METHOTREXATE [Concomitant]
     Route: 065
  4. 5-ASA [Concomitant]
     Route: 048
  5. 5-ASA [Concomitant]
     Route: 054

REACTIONS (1)
  - Drug ineffective [Recovered/Resolved with Sequelae]
